FAERS Safety Report 25587293 (Version 1)
Quarter: 2025Q3

REPORT INFORMATION
  Report Type: Spontaneous
  Country: US (occurrence: None)
  Receive Date: 20250721
  Receipt Date: 20250721
  Transmission Date: 20251020
  Serious: Yes (Death)
  Sender: FDA-CTU
  Company Number: None

PATIENT
  Age: 63 Year
  Sex: Male

DRUGS (4)
  1. JARDIANCE [Suspect]
     Active Substance: EMPAGLIFLOZIN
     Indication: Type 2 diabetes mellitus
  2. wound vac [Concomitant]
  3. METFORMIN [Concomitant]
     Active Substance: METFORMIN HYDROCHLORIDE
  4. cranberry pills [Concomitant]

REACTIONS (6)
  - Product communication issue [None]
  - Decubitus ulcer [None]
  - Necrotising fasciitis [None]
  - Sepsis [None]
  - Wound [None]
  - Hepatic cirrhosis [None]

NARRATIVE: CASE EVENT DATE: 20221107
